FAERS Safety Report 5880305-8 (Version None)
Quarter: 2008Q3

REPORT INFORMATION
  Report Type: 
  Country: None (occurrence: None)
  Receive Date: 20080912
  Receipt Date: 20080829
  Transmission Date: 20090109
  Serious: Yes (Hospitalization)
  Sender: FDA-Public Use
  Company Number: DE-AMGEN-UK297742

PATIENT
  Sex: Female
  Weight: 58 kg

DRUGS (13)
  1. ARANESP [Suspect]
     Indication: RENAL FAILURE CHRONIC
     Route: 065
  2. ROCALTROL [Concomitant]
     Route: 048
  3. CALCIUM ACETATE [Concomitant]
     Route: 048
  4. UNAT [Concomitant]
     Route: 048
  5. NOCTAMID [Concomitant]
     Route: 048
  6. AMLODIPINE [Concomitant]
     Route: 048
  7. FERRLECIT [Concomitant]
     Route: 042
  8. MIMPARA [Concomitant]
     Route: 048
  9. RENAGEL [Concomitant]
     Route: 048
  10. ASPIRIN [Concomitant]
     Route: 048
  11. AQUAPHOR [Concomitant]
     Route: 048
  12. COLECALCIFEROL [Concomitant]
     Route: 048
  13. DREISAVIT [Concomitant]
     Route: 048

REACTIONS (2)
  - CHRONIC OBSTRUCTIVE PULMONARY DISEASE [None]
  - LUNG INFECTION [None]
